FAERS Safety Report 9906214 (Version 1)
Quarter: 2014Q1

REPORT INFORMATION
  Report Type: Spontaneous
  Country: US (occurrence: None)
  Receive Date: 20140212
  Receipt Date: 20140212
  Transmission Date: 20141002
  Serious: Yes (Other)
  Sender: FDA-Public Use
  Company Number: None

PATIENT
  Age: 63 Year
  Sex: Female

DRUGS (2)
  1. DULOXETINE [Suspect]
     Indication: DEPRESSION
     Route: 048
     Dates: start: 20140129, end: 20140209
  2. DULOXETINE [Suspect]
     Indication: PAIN
     Route: 048
     Dates: start: 20140129, end: 20140209

REACTIONS (4)
  - Fatigue [None]
  - Constipation [None]
  - Agitation [None]
  - Drug ineffective [None]
